FAERS Safety Report 15766439 (Version 2)
Quarter: 2019Q1

REPORT INFORMATION
  Report Type: Spontaneous
  Country: IT (occurrence: IT)
  Receive Date: 20181227
  Receipt Date: 20190104
  Transmission Date: 20190417
  Serious: Yes (Hospitalization, Other)
  Sender: FDA-Public Use
  Company Number: IT-ASTRAZENECA-2018SF69937

PATIENT
  Age: 26013 Day
  Sex: Female
  Weight: 85 kg

DRUGS (9)
  1. FASENRA [Suspect]
     Active Substance: BENRALIZUMAB
     Dosage: 30 MG, THE FIRST TIME ON 21-NOV-2018 AT 12:00 A.M. AND DURING THE SAME DAY, AT 8:30 P.M.
     Route: 058
     Dates: start: 20181121
  2. TAUXIB [Concomitant]
     Active Substance: ETORICOXIB
     Indication: OSTEOARTHRITIS
     Dosage: AS NEEDED
  3. FASENRA [Suspect]
     Active Substance: BENRALIZUMAB
     Route: 058
     Dates: start: 20181212
  4. ATORVASTATIN [Concomitant]
     Active Substance: ATORVASTATIN
     Indication: HYPERCHOLESTEROLAEMIA
  5. SPIRIVA RESPIMAT [Concomitant]
     Active Substance: TIOTROPIUM BROMIDE
     Dosage: 2 PUFFS/DAY
  6. MEDROL [Concomitant]
     Active Substance: METHYLPREDNISOLONE
     Dosage: 16MG ??? TABLET/DAY
  7. BISOPROLOL [Concomitant]
     Active Substance: BISOPROLOL
     Indication: HYPERTENSION
  8. MONTELUKAST [Concomitant]
     Active Substance: MONTELUKAST SODIUM
     Dosage: 10MG 1 TABLET/DAY
  9. LANSOPRAZOLE. [Concomitant]
     Active Substance: LANSOPRAZOLE

REACTIONS (3)
  - Neck pain [Unknown]
  - Hyperpyrexia [Recovered/Resolved]
  - Headache [Unknown]

NARRATIVE: CASE EVENT DATE: 20181121
